FAERS Safety Report 13036758 (Version 10)
Quarter: 2018Q2

REPORT INFORMATION
  Report Type: Report from Study
  Country: IL (occurrence: IL)
  Receive Date: 20161216
  Receipt Date: 20180529
  Transmission Date: 20180711
  Serious: Yes (Death, Hospitalization, Other)
  Sender: FDA-Public Use
  Company Number: IL-ACTELION-A-NJ2016-147090

PATIENT
  Age: 64 Year
  Sex: Female

DRUGS (12)
  1. PLAQUENIL [Concomitant]
     Active Substance: HYDROXYCHLOROQUINE SULFATE
     Dosage: UNK
  2. SIMOVIL [Concomitant]
     Active Substance: SIMVASTATIN
     Dosage: UNK
  3. VENTAVIS [Suspect]
     Active Substance: ILOPROST
     Indication: PULMONARY HYPERTENSION
     Dosage: UNK
     Route: 055
     Dates: start: 20120109
  4. OPSUMIT [Concomitant]
     Active Substance: MACITENTAN
  5. LOSEC [Concomitant]
     Active Substance: OMEPRAZOLE
     Dosage: UNK
  6. CALCIUM + VIT D [Concomitant]
     Active Substance: CALCIUM\VITAMIN D
  7. ASPIRIN. [Suspect]
     Active Substance: ASPIRIN
     Indication: INTRACARDIAC THROMBUS
     Dosage: UNK
     Route: 065
     Dates: start: 201802
  8. TRAMADEX [Concomitant]
     Active Substance: TRAMADOL
     Dosage: UNK
  9. AHISTON [Concomitant]
     Active Substance: CHLORPHENIRAMINE MALEATE
  10. ALPHA D [Concomitant]
  11. MONOCORD [Concomitant]
  12. CHLORPHENAMINE [Concomitant]
     Active Substance: CHLORPHENIRAMINE MALEATE

REACTIONS (16)
  - Coronary artery bypass [Fatal]
  - Intracardiac thrombus [Recovered/Resolved]
  - Coronary arterial stent insertion [Recovering/Resolving]
  - Angina pectoris [Unknown]
  - Coronary artery occlusion [Unknown]
  - General physical health deterioration [Unknown]
  - Fatigue [Not Recovered/Not Resolved]
  - Chest discomfort [Not Recovered/Not Resolved]
  - Chest pain [Recovering/Resolving]
  - Tachypnoea [Unknown]
  - Tachycardia [Unknown]
  - Cough [Recovered/Resolved]
  - Dyspnoea [Recovered/Resolved]
  - Haemoglobin decreased [Recovered/Resolved]
  - Transfusion [Unknown]
  - Haemodynamic instability [Unknown]

NARRATIVE: CASE EVENT DATE: 201611
